FAERS Safety Report 15152830 (Version 2)
Quarter: 2018Q3

REPORT INFORMATION
  Report Type: Report from Study
  Country: US (occurrence: US)
  Receive Date: 20180717
  Receipt Date: 20180821
  Transmission Date: 20181010
  Serious: Yes (Other)
  Sender: FDA-Public Use
  Company Number: US-ROCHE-2154208

PATIENT
  Age: 75 Year
  Sex: Female
  Weight: 49.94 kg

DRUGS (12)
  1. LEVOTHYROXINE. [Concomitant]
     Active Substance: LEVOTHYROXINE
     Dosage: ONCE A DAY ;ONGOING: YES
     Route: 065
     Dates: start: 20180404
  2. LEVOTHYROXINE. [Concomitant]
     Active Substance: LEVOTHYROXINE
     Dosage: ONCE A DAY ;ONGOING: NO
     Route: 065
  3. LORAZEPAM. [Concomitant]
     Active Substance: LORAZEPAM
     Dosage: TAKES A HALF TAB AT NIGHT BEFORE BED ;ONGOING: YES
     Route: 065
  4. DIAZEPAM. [Suspect]
     Active Substance: DIAZEPAM
     Indication: DIZZINESS
     Dosage: AS NEEDED FOR SEVERE DIZZINESS ;ONGOING: YES
     Route: 065
  5. LOSARTAN. [Concomitant]
     Active Substance: LOSARTAN
     Dosage: ONCE A DAY ;ONGOING: YES
     Route: 065
  6. SPIROLACTONE [Concomitant]
     Active Substance: SPIRONOLACTONE
     Dosage: ONCE A DAY
     Route: 065
  7. OMEPRAZOLE. [Concomitant]
     Active Substance: OMEPRAZOLE
     Dosage: ONCE A DAY
     Route: 065
  8. OCREVUS [Suspect]
     Active Substance: OCRELIZUMAB
     Indication: RELAPSING MULTIPLE SCLEROSIS
     Dosage: 1ST HALF DOSE
     Route: 065
     Dates: start: 20180118
  9. CLONIDINE. [Concomitant]
     Active Substance: CLONIDINE
     Route: 065
     Dates: start: 20180525
  10. AMLODIPINE BESYLATE. [Concomitant]
     Active Substance: AMLODIPINE BESYLATE
     Dosage: ONCE IN THE MORING AND ONCE AT NIGHT ;ONGOING: YES
     Route: 065
  11. ALENDRONATE [Concomitant]
     Active Substance: ALENDRONATE SODIUM
     Dosage: ONCE A WEEK ON WEDNESDAY ;ONGOING: YES
     Route: 065
  12. OCREVUS [Suspect]
     Active Substance: OCRELIZUMAB
     Dosage: FIRST FULL DOSE OF OCREVUS
     Route: 065
     Dates: start: 20180618

REACTIONS (12)
  - Nervousness [Not Recovered/Not Resolved]
  - Dyspnoea [Unknown]
  - Heart rate decreased [Unknown]
  - Flushing [Not Recovered/Not Resolved]
  - Dizziness [Not Recovered/Not Resolved]
  - Cognitive disorder [Unknown]
  - Vertigo [Not Recovered/Not Resolved]
  - Adverse drug reaction [Unknown]
  - Disturbance in attention [Unknown]
  - Fatigue [Unknown]
  - Feeling abnormal [Unknown]
  - Hypertension [Unknown]

NARRATIVE: CASE EVENT DATE: 20180618
